FAERS Safety Report 8248644-3 (Version None)
Quarter: 2012Q1

REPORT INFORMATION
  Report Type: 
  Country: None (occurrence: None)
  Receive Date: 20120331
  Receipt Date: 20120320
  Transmission Date: 20120608
  Serious: Yes (Other)
  Sender: FDA-Public Use
  Company Number: BR-AMGEN-BRASP2012018709

PATIENT
  Age: 56 Year
  Sex: Female
  Weight: 90 kg

DRUGS (3)
  1. VYTORIN [Concomitant]
     Dosage: UNK
  2. ENBREL [Suspect]
     Indication: ANKYLOSING SPONDYLITIS
     Dosage: 50 MG, WEEKLY
     Route: 058
     Dates: start: 20110921
  3. NAPRIX [Concomitant]
     Dosage: UNK

REACTIONS (5)
  - HEADACHE [None]
  - PULMONARY FIBROSIS [None]
  - HYPERTENSION [None]
  - MEMORY IMPAIRMENT [None]
  - NAUSEA [None]
